FAERS Safety Report 12699500 (Version 1)
Quarter: 2016Q3

REPORT INFORMATION
  Report Type: Spontaneous
  Country: US (occurrence: US)
  Receive Date: 20160830
  Receipt Date: 20160830
  Transmission Date: 20161109
  Serious: No
  Sender: FDA-Public Use
  Company Number: US-SUPERNUS PHARMACEUTICALS, INC.-2016SUP00123

PATIENT
  Sex: Female

DRUGS (2)
  1. TROKENDI XR [Suspect]
     Active Substance: TOPIRAMATE
     Dosage: 200 UNK, UNK
  2. TROKENDI XR [Suspect]
     Active Substance: TOPIRAMATE
     Indication: NEUROPATHY PERIPHERAL
     Dosage: 100 MG, 1X/DAY

REACTIONS (3)
  - Drug ineffective for unapproved indication [Unknown]
  - Confusional state [Not Recovered/Not Resolved]
  - Dyschromatopsia [Not Recovered/Not Resolved]
